FAERS Safety Report 7833392-1 (Version None)
Quarter: 2011Q4

REPORT INFORMATION
  Report Type: 
  Country: None (occurrence: None)
  Receive Date: 20111024
  Receipt Date: 20111020
  Transmission Date: 20120403
  Serious: Yes (Death, Hospitalization)
  Sender: FDA-Public Use
  Company Number: GB-PFIZER INC-2011223853

PATIENT
  Age: 21 Year
  Sex: Male

DRUGS (3)
  1. SEROQUEL [Suspect]
     Indication: PSYCHOTIC DISORDER
     Dosage: 800 MG UNIT DOSE
     Route: 048
     Dates: start: 20100916
  2. FLUOXETINE [Concomitant]
     Indication: DEPRESSED MOOD
     Dosage: 60 MG UNIT DOSE
     Route: 048
     Dates: start: 20101018
  3. LYRICA [Suspect]
     Indication: ANXIETY
     Dosage: 225 MG, 2X/DAY
     Route: 048
     Dates: start: 20101018

REACTIONS (1)
  - PANCREATITIS ACUTE [None]
